FAERS Safety Report 10695021 (Version 1)
Quarter: 2015Q1

REPORT INFORMATION
  Report Type: Spontaneous
  Country: US (occurrence: None)
  Receive Date: 20150105
  Receipt Date: 20150105
  Transmission Date: 20150721
  Serious: No
  Sender: FDA-Public Use
  Company Number: None

PATIENT
  Age: 57 Year
  Sex: Female

DRUGS (2)
  1. LIDOCAINE TRANSDERMAL PATCH 5% WATSON [Suspect]
     Active Substance: LIDOCAINE
     Indication: HERPES ZOSTER
     Dosage: 1 TO 3 PATCHES; 12 HR ON/12 HR OFF; APPLIED TO A SURFACE, USUSALLY THE SKIN
  2. LIDOCAINE TRANSDERMAL PATCH 5% WATSON [Suspect]
     Active Substance: LIDOCAINE
     Indication: PAIN
     Dosage: 1 TO 3 PATCHES; 12 HR ON/12 HR OFF; APPLIED TO A SURFACE, USUSALLY THE SKIN

REACTIONS (4)
  - Drug ineffective [None]
  - Device adhesion issue [None]
  - Product substitution issue [None]
  - Product quality issue [None]
